FAERS Safety Report 4819008-7 (Version None)
Quarter: 2005Q4

REPORT INFORMATION
  Report Type: 
  Country: None (occurrence: None)
  Receive Date: 20051103
  Receipt Date: 20051027
  Transmission Date: 20060501
  Serious: Yes (Hospitalization)
  Sender: FDA-Public Use
  Company Number: US-BRISTOL-MYERS SQUIBB COMPANY-13159298

PATIENT
  Age: 52 Year
  Sex: Female

DRUGS (9)
  1. CETUXIMAB [Suspect]
     Indication: SQUAMOUS CELL CARCINOMA
     Dosage: INITIATED ON 17-FEB-2005.
     Dates: start: 20050520, end: 20050520
  2. CARBOPLATIN [Suspect]
     Indication: SQUAMOUS CELL CARCINOMA
     Dosage: INITIATED ON 17-FEB-2005.
     Dates: start: 20050520, end: 20050520
  3. TAXOL [Suspect]
     Indication: SQUAMOUS CELL CARCINOMA
     Dosage: INITIATED ON 17-FEB-2005.
     Dates: start: 20050520, end: 20050520
  4. EVISTA [Concomitant]
     Indication: HORMONE REPLACEMENT THERAPY
     Dates: start: 20030715
  5. HYDROCODONE [Concomitant]
     Indication: PAIN
     Dosage: HOLD 07-JUN-2005.
     Dates: start: 20041101
  6. M.V.I. [Concomitant]
     Indication: MEDICAL DIET
     Dates: start: 20041101
  7. PEPCID AC [Concomitant]
     Indication: DYSPEPSIA
     Dates: start: 20050223
  8. PROPRANOLOL [Concomitant]
     Indication: TREMOR
     Dates: start: 19530715
  9. ZOLOFT [Concomitant]
     Indication: DEPRESSION
     Dates: start: 19980715

REACTIONS (4)
  - ASTHENIA [None]
  - BLOOD CHLORIDE DECREASED [None]
  - DEHYDRATION [None]
  - RENAL FAILURE ACUTE [None]
